FAERS Safety Report 17962765 (Version 1)
Quarter: 2020Q2

REPORT INFORMATION
  Report Type: Report from Study
  Country: None (occurrence: US)
  Receive Date: 20200630
  Receipt Date: 20200630
  Transmission Date: 20200714
  Serious: No
  Sender: FDA-Public Use
  Company Number: US-BIOVITRUM-2019US4736

PATIENT
  Sex: Female

DRUGS (4)
  1. PREDNISONE. [Concomitant]
     Active Substance: PREDNISONE
  2. IBUPROFEN. [Concomitant]
     Active Substance: IBUPROFEN
  3. PROTONIX [Concomitant]
     Active Substance: PANTOPRAZOLE SODIUM
  4. KINERET [Suspect]
     Active Substance: ANAKINRA
     Indication: STILL^S DISEASE
     Route: 058
     Dates: start: 20191101

REACTIONS (21)
  - Arthralgia [Unknown]
  - Alanine aminotransferase increased [Unknown]
  - Chest pain [Unknown]
  - Dyspnoea [Unknown]
  - Fatigue [Unknown]
  - Aspartate aminotransferase increased [Unknown]
  - Tenosynovitis [Unknown]
  - Peripheral swelling [Unknown]
  - Injection site induration [Unknown]
  - Injection site pruritus [Unknown]
  - Cough [Unknown]
  - Joint stiffness [Unknown]
  - Skin hyperpigmentation [Unknown]
  - Dyspnoea exertional [Unknown]
  - Haematocrit decreased [Unknown]
  - Carbon dioxide decreased [Unknown]
  - Skin hypopigmentation [Unknown]
  - Synovitis [Unknown]
  - Injection site pain [Unknown]
  - Off label use [Unknown]
  - Abdominal pain [Unknown]
